FAERS Safety Report 10765873 (Version 1)
Quarter: 2015Q1

REPORT INFORMATION
  Report Type: Spontaneous
  Country: US (occurrence: None)
  Receive Date: 20150204
  Receipt Date: 20150204
  Transmission Date: 20150721
  Serious: Yes (Disabling)
  Sender: FDA-Public Use
  Company Number: None

PATIENT
  Age: 54 Year
  Sex: Female

DRUGS (5)
  1. ASPIRIN. [Concomitant]
     Active Substance: ASPIRIN
  2. VITAMIN D [Concomitant]
     Active Substance: CHOLECALCIFEROL
  3. MULTIVITAMIN [Concomitant]
     Active Substance: VITAMINS
  4. FAMOTIDINE. [Suspect]
     Active Substance: FAMOTIDINE
     Indication: VOMITING
     Dosage: TWICE A DAY AFTER EATING BY MOUTH
     Route: 048
     Dates: start: 20141208, end: 20141224
  5. VITAMIN C [Concomitant]
     Active Substance: ASCORBIC ACID

REACTIONS (1)
  - Alopecia [None]

NARRATIVE: CASE EVENT DATE: 20141224
